FAERS Safety Report 7594068-1 (Version None)
Quarter: 2011Q3

REPORT INFORMATION
  Report Type: 
  Country: None (occurrence: None)
  Receive Date: 20110706
  Receipt Date: 20110621
  Transmission Date: 20111222
  Serious: Yes (Hospitalization)
  Sender: FDA-Public Use
  Company Number: FR-GENENTECH-320796

PATIENT
  Sex: Female

DRUGS (1)
  1. RITUXAN [Suspect]
     Indication: ASTHMA
     Dosage: 1000 MG, UNK
     Route: 042
     Dates: start: 20110308, end: 20110322

REACTIONS (1)
  - VIITH NERVE PARALYSIS [None]
